FAERS Safety Report 7153112-6 (Version None)
Quarter: 2010Q4

REPORT INFORMATION
  Report Type: 
  Country: None (occurrence: None)
  Receive Date: 20101213
  Receipt Date: 20101130
  Transmission Date: 20110411
  Serious: Yes (Hospitalization, Other)
  Sender: FDA-Public Use
  Company Number: PHHY2010BR42662

PATIENT
  Age: 82 Year
  Sex: Female
  Weight: 64 kg

DRUGS (7)
  1. RASILEZ HCT [Suspect]
     Indication: HYPERTENSION
     Dosage: 1 TABLET AT NIGHT
     Route: 048
     Dates: start: 20100301
  2. BETAHISTINE [Concomitant]
     Indication: LABYRINTHITIS
     Dosage: HALF TABLET AT NIGHT
     Route: 048
  3. RIVOTRIL [Concomitant]
     Indication: LABYRINTHITIS
     Dosage: HALF TABLET AT NIGHT
     Route: 048
  4. CYCLOBENZAPRINE HCL [Concomitant]
     Indication: BACK PAIN
     Dosage: HALF TABLET AT NIGHT, PRN
     Route: 048
  5. ALGINAC [Concomitant]
     Indication: BACK PAIN
     Dosage: 1 DF, BID (MORNING AND NIGHT), PRN
     Dates: start: 20100301
  6. AMLODIPINE BESYLATE [Concomitant]
     Dosage: 2.5 MG, ONE TABLET, DAILY, ORAL
     Route: 048
  7. PRESSAT [Suspect]

REACTIONS (7)
  - BLOOD GLUCOSE FLUCTUATION [None]
  - BLOOD PRESSURE INADEQUATELY CONTROLLED [None]
  - BLOOD PRESSURE INCREASED [None]
  - DIARRHOEA [None]
  - DYSPNOEA [None]
  - GASTROINTESTINAL INFLAMMATION [None]
  - NERVOUSNESS [None]
